FAERS Safety Report 4472305-X (Version None)
Quarter: 2004Q4

REPORT INFORMATION
  Report Type: 
  Country: None (occurrence: None)
  Receive Date: 20041007
  Receipt Date: 20040924
  Transmission Date: 20050328
  Serious: Yes (Other)
  Sender: FDA-Public Use
  Company Number: 2004070086

PATIENT
  Sex: Female
  Weight: 65.318 kg

DRUGS (2)
  1. DILANTIN [Suspect]
     Indication: EPILEPSY
     Dosage: ORAL
     Route: 048
  2. ALL OTHER THERAPEUTIC PRODUCTS (ALL OTHER THERAPEUTIC PRODUCTS) [Concomitant]

REACTIONS (6)
  - CONDITION AGGRAVATED [None]
  - CONVULSION [None]
  - GASTROINTESTINAL DISORDER [None]
  - GINGIVAL DISORDER [None]
  - RENAL FAILURE [None]
  - TOOTH DISORDER [None]
